FAERS Safety Report 5943703-X (Version None)
Quarter: 2008Q4

REPORT INFORMATION
  Report Type: 
  Country: None (occurrence: None)
  Receive Date: 20081021
  Receipt Date: 20080313
  Transmission Date: 20090506
  Serious: Yes (Other)
  Sender: FDA-Public Use
  Company Number: HQWYE203016JUL04

PATIENT
  Age: 52 Year
  Sex: Female
  Weight: 79.45 kg

DRUGS (6)
  1. PREMARIN [Suspect]
     Indication: ARTIFICIAL MENOPAUSE
     Dosage: ORAL
     Route: 048
     Dates: start: 19940101, end: 20020311
  2. COZAAR [Concomitant]
  3. ATENOLOL [Concomitant]
  4. HYDROXYCHLOROQUINE SULFATE [Concomitant]
  5. VALDECOXIB [Concomitant]
  6. PREDNISONE TAB [Concomitant]

REACTIONS (2)
  - DEEP VEIN THROMBOSIS [None]
  - PULMONARY EMBOLISM [None]
